FAERS Safety Report 4425070-6 (Version None)
Quarter: 2004Q3

REPORT INFORMATION
  Report Type: 
  Country: None (occurrence: None)
  Receive Date: 20040813
  Receipt Date: 20040810
  Transmission Date: 20050211
  Serious: Yes (Life-Threatening, Hospitalization)
  Sender: FDA-Public Use
  Company Number: CA-BRISTOL-MYERS SQUIBB COMPANY-12666087

PATIENT
  Age: 38 Year
  Sex: Female

DRUGS (16)
  1. DIDANOSINE [Suspect]
     Indication: HIV INFECTION
     Dates: start: 20020530, end: 20020913
  2. TENOFOVIR DF [Suspect]
     Indication: HIV INFECTION
     Dosage: STOPPED 13-SEP-2002, RESTARTED 23-SEP-2002
     Route: 048
     Dates: start: 20020530, end: 20021001
  3. STAVUDINE [Concomitant]
     Dosage: STOPPED 13-SEP-2002, RESTARTED 23-SEP-2002
     Dates: start: 20020530
  4. KALETRA [Concomitant]
     Dosage: STOPPED 13-SEP-2002, RESTARTED 23-SEP-2002
     Dates: start: 20020530
  5. EFAVIRENZ [Concomitant]
     Dosage: STOPPED 13-SEP-2002, RESTARTED 23-SEP-2002
     Dates: start: 20020530
  6. LIPIDIL [Concomitant]
     Dates: start: 20011029
  7. NEUPOGEN [Concomitant]
     Dates: start: 20010829
  8. WARFARIN SODIUM [Concomitant]
     Dates: start: 20010718
  9. COVERSYL [Concomitant]
     Dates: start: 20010604
  10. NOVOLIN 70/30 [Concomitant]
     Dates: start: 19991126
  11. FLUCONAZOLE [Concomitant]
     Dates: start: 19980202
  12. SEPTRA [Concomitant]
     Dates: start: 19961002
  13. CLINDAMYCIN [Concomitant]
     Dates: start: 19960410
  14. DARAPRIM [Concomitant]
     Dates: start: 19950306
  15. FOLINIC ACID [Concomitant]
     Dates: start: 19951123
  16. LAMIVUDINE [Concomitant]
     Dates: start: 20020923

REACTIONS (4)
  - HYPERKALAEMIA [None]
  - HYPERLACTACIDAEMIA [None]
  - PANCREATITIS [None]
  - RENAL FAILURE [None]
